FAERS Safety Report 10039547 (Version 1)
Quarter: 2014Q1

REPORT INFORMATION
  Report Type: Spontaneous
  Country: US (occurrence: None)
  Receive Date: 20140306
  Receipt Date: 20140306
  Transmission Date: 20141002
  Serious: Yes (Life-Threatening, Hospitalization, Other)
  Sender: FDA-Public Use
  Company Number: 163-21880-10041997

PATIENT
  Age: 76 Year
  Sex: Female

DRUGS (5)
  1. REVLIMID [Suspect]
     Indication: PLASMA CELL MYELOMA
     Dosage: 21 IN 21 D
     Route: 048
     Dates: start: 200810
  2. DEXAMETHASONE [Suspect]
     Indication: PLASMA CELL MYELOMA
     Dosage: DAYS 1, 8, 15 AND 22
     Route: 048
     Dates: start: 20080611
  3. PERIFOSINE [Concomitant]
  4. BABY ASA (ACETYLSALICYLIC ACID) [Concomitant]
  5. ASPIRIN (ACETYLSALICYLIC ACID) [Concomitant]

REACTIONS (3)
  - Pulmonary embolism [None]
  - Platelet count decreased [None]
  - Haemoglobin decreased [None]
